FAERS Safety Report 7602832-5 (Version None)
Quarter: 2011Q3

REPORT INFORMATION
  Report Type: 
  Country: None (occurrence: None)
  Receive Date: 20110712
  Receipt Date: 20110705
  Transmission Date: 20111222
  Serious: Yes (Life-Threatening, Hospitalization)
  Sender: FDA-Public Use
  Company Number: FR-JNJFOC-20110701748

PATIENT
  Sex: Male

DRUGS (1)
  1. CONCERTA [Suspect]
     Indication: DISTURBANCE IN ATTENTION
     Dosage: RECEIVED THE DOSE IN ALTERNATION BETWEEN 18MG ON WED, 36MG THE OTHER DAYS
     Route: 048
     Dates: start: 20080101, end: 20110101

REACTIONS (3)
  - OFF LABEL USE [None]
  - SUICIDE ATTEMPT [None]
  - OBSESSIVE-COMPULSIVE DISORDER [None]
